FAERS Safety Report 17213575 (Version 1)
Quarter: 2019Q4

REPORT INFORMATION
  Report Type: Spontaneous
  Country: US (occurrence: US)
  Receive Date: 20191230
  Receipt Date: 20191230
  Transmission Date: 20200122
  Serious: No
  Sender: FDA-Public Use
  Company Number: US-MYLANLABS-2019M1124755

PATIENT
  Sex: Female

DRUGS (1)
  1. ALPRAZOLAM TABLETS, USP [Suspect]
     Active Substance: ALPRAZOLAM
     Indication: INSOMNIA
     Dosage: NIGHTLY
     Dates: start: 201909, end: 2019

REACTIONS (6)
  - Malaise [Recovered/Resolved]
  - Autonomic nervous system imbalance [Recovered/Resolved]
  - Heart rate increased [Recovered/Resolved]
  - Heart rate variability decreased [Recovered/Resolved]
  - Fatigue [Recovered/Resolved]
  - Headache [Recovered/Resolved]

NARRATIVE: CASE EVENT DATE: 2019
